FAERS Safety Report 16788343 (Version 1)
Quarter: 2019Q3

REPORT INFORMATION
  Report Type: Spontaneous
  Country: FR (occurrence: FR)
  Receive Date: 20190910
  Receipt Date: 20190910
  Transmission Date: 20191005
  Serious: Yes (Other)
  Sender: FDA-Public Use
  Company Number: FR-BEH-2019106690

PATIENT
  Age: 66 Year
  Sex: Male

DRUGS (1)
  1. HIZENTRA [Suspect]
     Active Substance: HUMAN IMMUNOGLOBULIN G
     Indication: NERVOUS SYSTEM DISORDER
     Dosage: 40 GRAM, QW
     Route: 065

REACTIONS (1)
  - Injection site necrosis [Unknown]
